FAERS Safety Report 12000890 (Version 1)
Quarter: 2016Q1

REPORT INFORMATION
  Report Type: Spontaneous
  Country: PT (occurrence: PT)
  Receive Date: 20160204
  Receipt Date: 20160204
  Transmission Date: 20160526
  Serious: Yes (Congenital Anomaly, Other)
  Sender: FDA-Public Use
  Company Number: PT-GLAXOSMITHKLINE-PT2016010753

PATIENT
  Age: 6 Month
  Sex: Male
  Weight: 3.35 kg

DRUGS (2)
  1. SERETIDE [Suspect]
     Active Substance: FLUTICASONE FUROATE\SALMETEROL XINAFOATE
     Indication: DYSPNOEA
     Route: 064
     Dates: start: 20140619, end: 20140622
  2. NAUSEFE [Concomitant]
     Indication: PROPHYLAXIS OF NAUSEA AND VOMITING
     Dosage: DESDE AS PRIMEIRAS SEMANAS DE GRAVIDEZ AT? AOS 4 OU 5 MESES
     Route: 048
     Dates: start: 2014, end: 2014

REACTIONS (3)
  - Atrial septal defect [Not Recovered/Not Resolved]
  - Wolff-Parkinson-White syndrome congenital [Not Recovered/Not Resolved]
  - Exposure during pregnancy [Unknown]

NARRATIVE: CASE EVENT DATE: 201506
